FAERS Safety Report 6999127-X (Version None)
Quarter: 2010Q3

REPORT INFORMATION
  Report Type: 
  Country: None (occurrence: None)
  Receive Date: 20100920
  Receipt Date: 20100301
  Transmission Date: 20110219
  Serious: No
  Sender: FDA-Public Use
  Company Number: US-ASTRAZENECA-2010SE08727

PATIENT
  Age: 52 Year
  Sex: Female
  Weight: 69.9 kg

DRUGS (3)
  1. SEROQUEL [Suspect]
     Indication: BIPOLAR DISORDER
     Route: 048
     Dates: start: 20100201
  2. DEPAKOTE ER [Concomitant]
     Indication: BIPOLAR DISORDER
  3. NEURONTIN [Concomitant]
     Indication: BIPOLAR DISORDER

REACTIONS (2)
  - DYSGEUSIA [None]
  - FEELING ABNORMAL [None]
